FAERS Safety Report 8467325-4 (Version None)
Quarter: 2012Q2

REPORT INFORMATION
  Report Type: 
  Country: None (occurrence: None)
  Receive Date: 20120626
  Receipt Date: 20120622
  Transmission Date: 20120825
  Serious: Yes (Death, Hospitalization)
  Sender: FDA-Public Use
  Company Number: US-ABBOTT-12P-163-0937002-00

PATIENT
  Sex: Female
  Weight: 124.85 kg

DRUGS (1)
  1. HUMIRA [Suspect]
     Indication: PRODUCT USED FOR UNKNOWN INDICATION

REACTIONS (6)
  - UNEVALUABLE EVENT [None]
  - MALAISE [None]
  - NAUSEA [None]
  - DISEASE COMPLICATION [None]
  - PANCREATIC CARCINOMA [None]
  - PANCREATIC MASS [None]
